FAERS Safety Report 13240201 (Version 1)
Quarter: 2017Q1

REPORT INFORMATION
  Report Type: Spontaneous
  Country: US (occurrence: US)
  Receive Date: 20170216
  Receipt Date: 20170216
  Transmission Date: 20170428
  Serious: Yes (Life-Threatening, Other)
  Sender: FDA-Public Use
  Company Number: US-PFIZER INC-1612589

PATIENT
  Age: 2 Year
  Sex: Male

DRUGS (2)
  1. VINCRISTINE [Suspect]
     Active Substance: VINCRISTINE
     Indication: CONGENITAL RETINOBLASTOMA
     Dosage: 2 MG, UNK
  2. VINCRISTINE SULFATE. [Suspect]
     Active Substance: VINCRISTINE SULFATE
     Indication: CONGENITAL RETINOBLASTOMA
     Dosage: 2 MG, UNK

REACTIONS (13)
  - Irritability [Recovered/Resolved]
  - Bone marrow failure [Recovered/Resolved]
  - Neuropathy peripheral [Recovered/Resolved]
  - Accidental overdose [Recovered/Resolved]
  - Gastrointestinal hypomotility [Recovered/Resolved]
  - Mucosal inflammation [Recovered/Resolved]
  - Product preparation error [Recovered/Resolved]
  - Cardiac arrest [Recovered/Resolved]
  - Hypotonia [Recovered/Resolved]
  - Inappropriate antidiuretic hormone secretion [Recovered/Resolved]
  - Toxicity to various agents [Recovered/Resolved]
  - Respiratory failure [Recovered/Resolved]
  - Pyrexia [Recovered/Resolved]
